FAERS Safety Report 8270460-7 (Version None)
Quarter: 2012Q2

REPORT INFORMATION
  Report Type: 
  Country: None (occurrence: None)
  Receive Date: 20120410
  Receipt Date: 20120402
  Transmission Date: 20120825
  Serious: Yes (Other)
  Sender: FDA-Public Use
  Company Number: PHHY2012FR028745

PATIENT
  Sex: Male

DRUGS (16)
  1. MYCOPHENOLATE MOFETIL (CELLCEPT) [Concomitant]
     Dates: start: 20110312
  2. AMLODIPINE BESYLATE [Concomitant]
     Dosage: 10 MG, UNK
     Dates: start: 20110401
  3. CERTICAN [Suspect]
     Dosage: 0.75 MG, BID
     Route: 048
     Dates: start: 20111206
  4. ALENDRONATE SODIUM [Concomitant]
  5. CERTICAN [Suspect]
     Dosage: 1.5 MG, BID
     Dates: start: 20120109
  6. MAG 2 [Concomitant]
     Dates: start: 20110601
  7. CERTICAN [Suspect]
     Dosage: 1.25 MG, BID
     Dates: start: 20120125, end: 20120301
  8. PROGRAF [Concomitant]
     Dosage: 4.5 MG, BID
     Dates: start: 20110312
  9. IRBESARTAN [Concomitant]
     Dosage: 75 MG, UNK
     Dates: start: 20111116
  10. CERTICAN [Suspect]
     Dosage: 1.25 MG, BID
     Dates: start: 20111221
  11. PROGRAF [Concomitant]
     Dosage: 0.5 MG, BID
     Dates: start: 20111206
  12. CALCIUM CARBONATE [Concomitant]
     Dates: start: 20110406
  13. KAYEXALATE [Concomitant]
     Dates: start: 20110801
  14. CERTICAN [Suspect]
     Dosage: 1 MG, BID
     Route: 048
     Dates: start: 20111215
  15. FOLIC ACID [Concomitant]
     Dosage: 3 DF, UNK
     Dates: start: 20110101
  16. LAMICTAL [Concomitant]
     Dates: start: 20110805

REACTIONS (3)
  - HAEMOGLOBIN DECREASED [None]
  - NEUTROPENIA [None]
  - IMMUNOSUPPRESSANT DRUG LEVEL DECREASED [None]
